FAERS Safety Report 11886318 (Version 1)
Quarter: 2016Q1

REPORT INFORMATION
  Report Type: Spontaneous
  Country: US (occurrence: US)
  Receive Date: 20160104
  Receipt Date: 20160104
  Transmission Date: 20160526
  Serious: No
  Sender: FDA-Public Use
  Company Number: US-BAYER-2016-000469

PATIENT
  Age: 68 Year
  Sex: Male
  Weight: 90.7 kg

DRUGS (2)
  1. ALEVE [Suspect]
     Active Substance: NAPROXEN SODIUM
     Indication: ANALGESIC THERAPY
     Dosage: 3 DF, BID
     Route: 048
  2. ALEVE [Suspect]
     Active Substance: NAPROXEN SODIUM
     Indication: ANALGESIC THERAPY
     Dosage: 3 DF, IN 14 HOURS
     Route: 048
     Dates: start: 20151230, end: 20151230

REACTIONS (1)
  - Product use issue [None]

NARRATIVE: CASE EVENT DATE: 20151230
